FAERS Safety Report 17432382 (Version 1)
Quarter: 2020Q1

REPORT INFORMATION
  Report Type: Spontaneous
  Country: US (occurrence: US)
  Receive Date: 20200218
  Receipt Date: 20200218
  Transmission Date: 20200409
  Serious: No
  Sender: FDA-Public Use
  Company Number: US-SA-2020SA035080

PATIENT
  Sex: Male

DRUGS (2)
  1. ICY HOT WITH LIDOCAINE [Suspect]
     Active Substance: LIDOCAINE\MENTHOL
     Indication: PAIN
     Dosage: UNK UNK, TWICE
  2. BIOFREEZE [Concomitant]
     Active Substance: MENTHOL
     Dosage: UNK

REACTIONS (1)
  - Drug ineffective [Unknown]
